FAERS Safety Report 4315935-8 (Version None)
Quarter: 2004Q1

REPORT INFORMATION
  Report Type: 
  Country: None (occurrence: None)
  Receive Date: 20040310
  Receipt Date: 20040302
  Transmission Date: 20041129
  Serious: No
  Sender: FDA-Public Use
  Company Number: 2004SE01228

PATIENT
  Age: 75 Year
  Sex: Female
  Weight: 56 kg

DRUGS (5)
  1. ARIMIDEX [Suspect]
     Indication: BREAST CANCER
     Dosage: 1 MG DAILY PO
     Route: 048
     Dates: start: 20031209
  2. NOOTROPIL [Concomitant]
  3. TIALORID [Concomitant]
  4. PREDUCTAL [Concomitant]
  5. BISOPROMERCK [Concomitant]

REACTIONS (2)
  - HYPOTENSION [None]
  - SYNCOPE [None]
